FAERS Safety Report 24283733 (Version 6)
Quarter: 2025Q2

REPORT INFORMATION
  Report Type: Spontaneous
  Country: JP (occurrence: JP)
  Receive Date: 20240905
  Receipt Date: 20250610
  Transmission Date: 20250717
  Serious: Yes (Other)
  Sender: CHATTEM
  Company Number: JP-OPELLA-2024OHG030504

PATIENT
  Age: 13 Year
  Sex: Male

DRUGS (4)
  1. XYZAL [Suspect]
     Active Substance: LEVOCETIRIZINE DIHYDROCHLORIDE
     Indication: Dermatitis atopic
     Dosage: THERAPY DURATION - 6 MONTHS 2 DAY
     Route: 048
     Dates: start: 20221227, end: 20230628
  2. XYZAL [Suspect]
     Active Substance: LEVOCETIRIZINE DIHYDROCHLORIDE
     Indication: Off label use
  3. LEVOCETIRIZINE HYDROCHLORIDE [Suspect]
     Active Substance: LEVOCETIRIZINE HYDROCHLORIDE
     Indication: Dermatitis atopic
     Route: 048
     Dates: start: 20221227, end: 20230118
  4. MONTELUKAST SODIUM [Suspect]
     Active Substance: MONTELUKAST SODIUM
     Indication: Dermatitis atopic
     Dosage: THERAPY DURATION- 1 MONTH 18 DAYS
     Route: 048
     Dates: start: 20230225, end: 20230411

REACTIONS (2)
  - Alopecia universalis [Not Recovered/Not Resolved]
  - Off label use [Unknown]

NARRATIVE: CASE EVENT DATE: 20230501
